FAERS Safety Report 6942289-0 (Version None)
Quarter: 2010Q3

REPORT INFORMATION
  Report Type: 
  Country: None (occurrence: None)
  Receive Date: 20100820
  Receipt Date: 20100810
  Transmission Date: 20110219
  Serious: Yes (Hospitalization)
  Sender: FDA-Public Use
  Company Number: OMPQ-PR-1008S-0719

PATIENT
  Age: 32 Year
  Sex: Female

DRUGS (1)
  1. OMNIPAQUE 140 [Suspect]
     Indication: BACK PAIN
     Dosage: NR, SINGLE DOSE, INTRADISCAL
     Route: 024
     Dates: start: 20100629, end: 20100629

REACTIONS (1)
  - CITROBACTER INFECTION [None]
